FAERS Safety Report 8608351-1 (Version None)
Quarter: 2012Q3

REPORT INFORMATION
  Report Type: 
  Country: None (occurrence: None)
  Receive Date: 20120821
  Receipt Date: 20120812
  Transmission Date: 20120928
  Serious: No
  Sender: FDA-Public Use
  Company Number: US-BAYER-2012-083255

PATIENT

DRUGS (2)
  1. ALEVE (CAPLET) [Suspect]
     Indication: PAIN IN EXTREMITY
     Route: 048
  2. BENGAY [Concomitant]
     Indication: PAIN IN EXTREMITY

REACTIONS (1)
  - PAIN IN EXTREMITY [None]
